FAERS Safety Report 6295561-4 (Version None)
Quarter: 2009Q3

REPORT INFORMATION
  Report Type: 
  Country: None (occurrence: None)
  Receive Date: 20090731
  Receipt Date: 20090728
  Transmission Date: 20100115
  Serious: Yes (Death)
  Sender: FDA-Public Use
  Company Number: 2009002876

PATIENT
  Age: 62 Year
  Sex: Male
  Weight: 127.9144 kg

DRUGS (15)
  1. TREANDA [Suspect]
     Indication: NON-HODGKIN'S LYMPHOMA
     Dosage: (90 MG/M2, CYCLE 1, DOSE 1), INTRAVENOUS DRIP
     Route: 041
     Dates: start: 20090401, end: 20090401
  2. VELCADE [Suspect]
     Indication: NON-HODGKIN'S LYMPHOMA
     Dosage: (1.6 MG/M2, CYCLE 1, DOSE 1), INTRAVENOUS
     Route: 042
     Dates: start: 20090401, end: 20090401
  3. RITUXAN [Concomitant]
  4. CARDIZEM CD [Concomitant]
  5. ATENOLOL [Concomitant]
  6. LASIX [Concomitant]
  7. LEVOTHYROXINE SODIUM [Concomitant]
  8. PROTONIX [Concomitant]
  9. ALAVERT [Concomitant]
  10. CORTAID (HYDROCORTISONE) [Concomitant]
  11. SIMVASTATIN [Concomitant]
  12. WARFARIN SODIUM [Concomitant]
  13. ALLOPURINOL [Concomitant]
  14. AZMACORT [Concomitant]
  15. XOPENEX [Concomitant]

REACTIONS (1)
  - ACUTE MYOCARDIAL INFARCTION [None]
